FAERS Safety Report 13089790 (Version 1)
Quarter: 2017Q1

REPORT INFORMATION
  Report Type: Spontaneous
  Country: JP (occurrence: JP)
  Receive Date: 20170105
  Receipt Date: 20170105
  Transmission Date: 20170428
  Serious: Yes (Hospitalization, Other)
  Sender: FDA-Public Use
  Company Number: JP-MYLANLABS-2016M1059109

PATIENT

DRUGS (2)
  1. GIMERACIL W/OTERACIL POTASSIUM/TEGAFUR [Suspect]
     Active Substance: GIMERACIL\OTERACIL\TEGAFUR
     Indication: METASTATIC GASTRIC CANCER
     Dosage: 80MG/M2 WAS ADMINISTERED FOR 3WEEKS; 6 CYCLES AT 14DAY INTERVAL FOLLOWED BY MONOTHERAPY
     Route: 048
  2. CISPLATIN. [Suspect]
     Active Substance: CISPLATIN
     Indication: METASTATIC GASTRIC CANCER
     Dosage: 60MG/M2 WAS ADMINISTERED ON DAY 8
     Route: 042

REACTIONS (4)
  - Pneumonia [Unknown]
  - Pancytopenia [Unknown]
  - Febrile neutropenia [Unknown]
  - Enteritis [Unknown]
